FAERS Safety Report 16987206 (Version 1)
Quarter: 2019Q4

REPORT INFORMATION
  Report Type: Spontaneous
  Country: US (occurrence: US)
  Receive Date: 20190919
  Receipt Date: 20190919
  Transmission Date: 20200122
  Serious: Yes (Other)
  Sender: FDA-Public Use
  Company Number: None

PATIENT
  Age: 81 Year
  Sex: Male

DRUGS (1)
  1. TETRABENAZINE. [Suspect]
     Active Substance: TETRABENAZINE
     Route: 048
     Dates: start: 201906

REACTIONS (2)
  - Gynaecomastia [None]
  - Prostate cancer [None]

NARRATIVE: CASE EVENT DATE: 20190918
